FAERS Safety Report 9233521 (Version 1)
Quarter: 2013Q2

REPORT INFORMATION
  Report Type: Spontaneous
  Country: US (occurrence: None)
  Receive Date: 20130415
  Receipt Date: 20130415
  Transmission Date: 20140414
  Serious: Yes (Hospitalization)
  Sender: FDA-Public Use
  Company Number: None

PATIENT
  Age: 83 Year
  Sex: Male
  Weight: 86.2 kg

DRUGS (13)
  1. PEMETREXED [Suspect]
     Indication: NON-SMALL CELL LUNG CANCER
     Dosage: 1025 MG EVERY 21 DAYS IV
     Route: 042
     Dates: start: 20121206, end: 20130103
  2. ERLOTINIB [Suspect]
     Indication: NON-SMALL CELL LUNG CANCER
     Dosage: 150 MG  D2-D19 OF 21D CYCLE ORAL
     Route: 048
     Dates: start: 20121207, end: 20130207
  3. FUROSEMIDE [Concomitant]
  4. MECLIZINE [Concomitant]
  5. POTASSIUM CHLORIDE SR ( KLOR-CON M20) [Concomitant]
  6. WARFARIN [Concomitant]
  7. CYANOCBALAMIN, VITAMIN B12 [Concomitant]
  8. DEXAMETHASONE ORAL [Concomitant]
  9. CLINDAMYCIN 1% GEL [Concomitant]
  10. ERLOTINIB (TARCEVA) [Concomitant]
  11. DICLOFENAC SODIUM 1 % GEL [Concomitant]
  12. FOLIC ACID [Concomitant]
  13. CELECOXIB ( CELEBREX) [Concomitant]

REACTIONS (7)
  - Soft tissue infection [None]
  - Cellulitis [None]
  - Urinary tract infection [None]
  - Peptic ulcer [None]
  - Haematemesis [None]
  - Epistaxis [None]
  - International normalised ratio increased [None]
